FAERS Safety Report 15347088 (Version 2)
Quarter: 2019Q1

REPORT INFORMATION
  Report Type: Spontaneous
  Country: DE (occurrence: DE)
  Receive Date: 20180904
  Receipt Date: 20190114
  Transmission Date: 20190417
  Serious: Yes (Life-Threatening, Hospitalization, Other)
  Sender: FDA-Public Use
  Company Number: DE-ASTELLAS-2018US038506

PATIENT
  Age: 27 Year
  Sex: Female
  Weight: 50 kg

DRUGS (4)
  1. LEMTRADA [Suspect]
     Active Substance: ALEMTUZUMAB
     Indication: RELAPSING-REMITTING MULTIPLE SCLEROSIS
     Route: 041
     Dates: start: 201610, end: 201610
  2. LEMTRADA [Suspect]
     Active Substance: ALEMTUZUMAB
     Route: 041
     Dates: start: 20171205, end: 20171209
  3. TACROLIMUS. [Suspect]
     Active Substance: TACROLIMUS
     Indication: PRODUCT USED FOR UNKNOWN INDICATION
     Route: 065
     Dates: start: 20180627, end: 20180727
  4. CYCLOSPORINE. [Concomitant]
     Active Substance: CYCLOSPORINE
     Indication: PRODUCT USED FOR UNKNOWN INDICATION
     Route: 065
     Dates: start: 20180627

REACTIONS (25)
  - General physical health deterioration [Recovering/Resolving]
  - Hepatic failure [Recovering/Resolving]
  - Coma [Unknown]
  - Splenomegaly [Unknown]
  - Cholecystitis [Recovering/Resolving]
  - Abdominal pain upper [Recovering/Resolving]
  - Atelectasis [Recovering/Resolving]
  - Hepatomegaly [Unknown]
  - Toxic encephalopathy [Unknown]
  - Mood altered [Unknown]
  - Autoimmune hepatitis [Recovering/Resolving]
  - Hepatic encephalopathy [Recovering/Resolving]
  - Weight decreased [Unknown]
  - Swelling face [Unknown]
  - Cognitive disorder [Unknown]
  - Epilepsy [Recovering/Resolving]
  - Depression [Unknown]
  - Fatigue [Unknown]
  - Language disorder [Recovering/Resolving]
  - Ataxia [Unknown]
  - Hypothyroidism [Unknown]
  - Musculoskeletal pain [Unknown]
  - Mood swings [Unknown]
  - Pleural effusion [Recovering/Resolving]
  - Ovarian cyst [Recovering/Resolving]

NARRATIVE: CASE EVENT DATE: 201806
